FAERS Safety Report 7300534-6 (Version None)
Quarter: 2011Q1

REPORT INFORMATION
  Report Type: 
  Country: None (occurrence: None)
  Receive Date: 20110218
  Receipt Date: 20110211
  Transmission Date: 20110831
  Serious: Yes (Other)
  Sender: FDA-Public Use
  Company Number: US-ASTRAZENECA-2007UW25110

PATIENT
  Age: 45 Year
  Sex: Female
  Weight: 101.6 kg

DRUGS (51)
  1. SEROQUEL [Suspect]
     Dosage: 25 MG - 150 MG
     Route: 048
     Dates: start: 20001110
  2. SEROQUEL [Suspect]
     Dosage: 25 MG - 150 MG
     Route: 048
     Dates: start: 20001110
  3. SEROQUEL [Suspect]
     Dosage: 25 MG TAB FOUR A DAY
     Route: 048
     Dates: start: 20090101
  4. IBUPROFEN [Concomitant]
     Route: 065
  5. SEROQUEL [Suspect]
     Indication: SLEEP DISORDER
     Route: 048
     Dates: start: 20000601
  6. SEROQUEL [Suspect]
     Dosage: 25 MG TAB FOUR A DAY
     Route: 048
     Dates: start: 20090101
  7. SEROQUEL [Suspect]
     Dosage: 25 MG TAB FOUR A DAY
     Route: 048
     Dates: start: 20090101
  8. KLONOPIN [Concomitant]
     Dosage: 1-3 MG
     Route: 048
  9. SEROQUEL [Suspect]
     Indication: DEPRESSION
     Route: 048
     Dates: start: 20000601
  10. SEROQUEL [Suspect]
     Indication: POST-TRAUMATIC STRESS DISORDER
     Route: 048
     Dates: start: 20000601
  11. SEROQUEL [Suspect]
     Dosage: 25 MG - 150 MG
     Route: 048
     Dates: start: 20001110
  12. KLONOPIN [Concomitant]
     Indication: PANIC ATTACK
     Dosage: 1 MG TO 4 MG
     Dates: start: 20090101
  13. KLONOPIN [Concomitant]
     Indication: DEPRESSION
     Dosage: 1 MG TO 4 MG
     Dates: start: 20090101
  14. AVIANE-28 [Concomitant]
     Route: 065
  15. VESICARE [Concomitant]
     Route: 065
  16. SEROQUEL [Suspect]
     Route: 048
     Dates: start: 20000601, end: 20071201
  17. SEROQUEL [Suspect]
     Route: 048
     Dates: start: 20000601, end: 20071201
  18. SEROQUEL [Suspect]
     Route: 048
     Dates: start: 20000601, end: 20071201
  19. SEROQUEL [Suspect]
     Dosage: 25 MG - 150 MG
     Route: 048
     Dates: start: 20001110
  20. SEROQUEL [Suspect]
     Dosage: 25 MG TAB FOUR A DAY
     Route: 048
     Dates: start: 20090101
  21. FLAXSEED OIL [Concomitant]
     Route: 065
  22. KLONOPIN [Concomitant]
     Dosage: 1-3 MG
     Route: 048
  23. KLONOPIN [Concomitant]
     Dosage: 1-3 MG
     Route: 048
  24. SYNTHROID [Concomitant]
     Route: 048
  25. OXYCODONE [Concomitant]
     Route: 065
  26. SEROQUEL [Suspect]
     Route: 048
     Dates: start: 20000601, end: 20071201
  27. SEROQUEL [Suspect]
     Dosage: 25 MG - 150 MG
     Route: 048
     Dates: start: 20001110
  28. SEROQUEL [Suspect]
     Dosage: 25 MG - 150 MG
     Route: 048
     Dates: start: 20001110
  29. SEROQUEL [Suspect]
     Dosage: 25 MG TAB FOUR A DAY
     Route: 048
     Dates: start: 20090101
  30. VICODIN [Concomitant]
     Indication: PAIN
     Route: 065
     Dates: start: 20090101
  31. SYNTHROID [Concomitant]
     Indication: THYROID DISORDER
     Dates: start: 20090101
  32. URSODIOL [Concomitant]
     Route: 048
  33. IMODIUM [Concomitant]
     Route: 065
  34. GEODON [Concomitant]
  35. CRESTOR [Concomitant]
     Indication: BLOOD CHOLESTEROL INCREASED
     Dates: start: 20090101
  36. FLUOXETINE [Concomitant]
     Dosage: 20 MG/ 5 ML SOLUTION ONE TEASPOON TWICE A DAY
     Dates: start: 20090101
  37. SEROQUEL [Suspect]
     Indication: ANXIETY
     Route: 048
     Dates: start: 20000601
  38. SEROQUEL [Suspect]
     Route: 048
     Dates: start: 20000601, end: 20071201
  39. KLONOPIN [Concomitant]
     Indication: ANXIETY
     Dosage: 1 MG TO 4 MG
     Dates: start: 20090101
  40. TRIAMTERENE [Concomitant]
     Route: 065
  41. FUROSEMIDE [Concomitant]
     Route: 065
  42. SEROQUEL [Suspect]
     Indication: PANIC ATTACK
     Route: 048
     Dates: start: 20000601
  43. SEROQUEL [Suspect]
     Indication: SCHIZOPHRENIA
     Route: 048
     Dates: start: 20000601
  44. SEROQUEL [Suspect]
     Route: 048
     Dates: start: 20000601, end: 20071201
  45. SEROQUEL [Suspect]
     Dosage: 25 MG TAB FOUR A DAY
     Route: 048
     Dates: start: 20090101
  46. METFORMIN [Concomitant]
     Indication: GLUCOSE TOLERANCE IMPAIRED
     Route: 065
  47. DIAZIDE [Concomitant]
     Route: 065
  48. PROZAC [Concomitant]
     Dosage: 20-30 MG
     Route: 048
     Dates: start: 20060101
  49. ABILIFY [Concomitant]
     Route: 065
  50. TRIAMTERENE AND HYDROCHLOROTHIAZIDE [Concomitant]
     Indication: HYPERTENSION
     Dosage: 37.5 - 25 MG CAPSULE ONE DAILY
     Dates: start: 20090101
  51. MIRENA [Concomitant]
     Indication: HAEMORRHAGE
     Dates: start: 20090211

REACTIONS (10)
  - JOINT INJURY [None]
  - VISION BLURRED [None]
  - BLOOD TRIGLYCERIDES INCREASED [None]
  - DIABETIC COMPLICATION [None]
  - TYPE 2 DIABETES MELLITUS [None]
  - VAGINAL HAEMORRHAGE [None]
  - ARTHRALGIA [None]
  - OVARIAN DISORDER [None]
  - OBESITY [None]
  - DYSFUNCTIONAL UTERINE BLEEDING [None]
